FAERS Safety Report 13461543 (Version 1)
Quarter: 2017Q2

REPORT INFORMATION
  Report Type: Spontaneous
  Country: US (occurrence: US)
  Receive Date: 20170420
  Receipt Date: 20170420
  Transmission Date: 20170830
  Serious: Yes (Disabling, Other)
  Sender: FDA-Public Use
  Company Number: US-REGENERON PHARMACEUTICALS, INC.-2017-14514

PATIENT

DRUGS (1)
  1. EYLEA [Suspect]
     Active Substance: AFLIBERCEPT
     Indication: NEOVASCULAR AGE-RELATED MACULAR DEGENERATION
     Dosage: 2 MG MILLIGRAM(S), OS, EVERY 12 WEEKS
     Route: 031
     Dates: start: 20141203, end: 20161129

REACTIONS (9)
  - Corneal dystrophy [Recovered/Resolved]
  - Non-infectious endophthalmitis [Recovered/Resolved]
  - Corneal oedema [Unknown]
  - Eye pain [Recovered/Resolved]
  - Vision blurred [Recovered/Resolved]
  - Corneal lesion [Unknown]
  - Iridocyclitis [Recovered/Resolved]
  - Hypopyon [Unknown]
  - Blindness unilateral [Unknown]

NARRATIVE: CASE EVENT DATE: 20161205
